FAERS Safety Report 22225188 (Version 1)
Quarter: 2023Q2

REPORT INFORMATION
  Report Type: Spontaneous
  Country: US (occurrence: US)
  Receive Date: 20230418
  Receipt Date: 20230418
  Transmission Date: 20230721
  Serious: Yes (Hospitalization, Other)
  Sender: FDA-Public Use
  Company Number: US-FERRINGPH-2023FE01711

PATIENT

DRUGS (1)
  1. REBYOTA [Suspect]
     Active Substance: DONOR HUMAN STOOL
     Indication: Product used for unknown indication
     Dosage: UNK
     Route: 065
     Dates: start: 20230323, end: 20230323

REACTIONS (9)
  - Malaise [Unknown]
  - Vomiting [Unknown]
  - Urinary tract infection [Unknown]
  - Intra-abdominal fluid collection [Unknown]
  - Gastrointestinal disorder [Unknown]
  - Pyrexia [Unknown]
  - Tremor [Unknown]
  - Clostridium test positive [Unknown]
  - Diarrhoea [Unknown]

NARRATIVE: CASE EVENT DATE: 20230101
